FAERS Safety Report 8857016 (Version 1)
Quarter: 2012Q4

REPORT INFORMATION
  Report Type: 
  Country: US (occurrence: US)
  Receive Date: 20121023
  Receipt Date: 20121023
  Transmission Date: 20130627
  Serious: No
  Sender: FDA-Public Use
  Company Number: US-AMGEN-USASP2012055870

PATIENT
  Age: 60 Year
  Sex: Female
  Weight: 56.69 kg

DRUGS (5)
  1. ENBREL [Suspect]
     Indication: PRODUCT USED FOR UNKNOWN INDICATION
     Dosage: 50 mg, qwk
     Route: 058
  2. EVISTA [Concomitant]
     Dosage: 60 mg, TAB
  3. SLEEPING                           /00000402/ [Concomitant]
     Dosage: 25 mg, TAB
  4. CALCIUM [Concomitant]
     Dosage: 500 UNK, TAB
  5. MULTIVITAMIN                       /00097801/ [Concomitant]
     Dosage: UNK, CAP

REACTIONS (5)
  - Depression [Unknown]
  - Lethargy [Unknown]
  - Injection site mass [Unknown]
  - Wrong technique in drug usage process [Unknown]
  - Injection site pain [Unknown]
